FAERS Safety Report 7473382-4 (Version None)
Quarter: 2011Q2

REPORT INFORMATION
  Report Type: 
  Country: None (occurrence: None)
  Receive Date: 20110511
  Receipt Date: 20110507
  Transmission Date: 20111010
  Serious: Yes (Hospitalization)
  Sender: FDA-Public Use
  Company Number: HU-ABBOTT-11P-076-0724256-00

PATIENT
  Sex: Male
  Weight: 75.2 kg

DRUGS (2)
  1. ZEMPLAR [Suspect]
     Indication: HYPERPARATHYROIDISM SECONDARY
     Dosage: 4 X WEEKLY, DIALYSIS
     Route: 042
     Dates: start: 20110112, end: 20110408
  2. ZEMPLAR [Suspect]
     Indication: RENAL FAILURE CHRONIC
     Dosage: 4 X WEEKLY, DIALYSIS
     Route: 042
     Dates: start: 20110408

REACTIONS (2)
  - PYREXIA [None]
  - ERYSIPELAS [None]
